FAERS Safety Report 22587771 (Version 2)
Quarter: 2023Q2

REPORT INFORMATION
  Report Type: Spontaneous
  Country: US (occurrence: US)
  Receive Date: 20230612
  Receipt Date: 20230615
  Transmission Date: 20230722
  Serious: No
  Sender: FDA-Public Use
  Company Number: US-ABBVIE-5284271

PATIENT
  Age: 63 Year
  Sex: Female
  Weight: 56.699 kg

DRUGS (1)
  1. PRED FORTE [Suspect]
     Active Substance: PREDNISOLONE ACETATE
     Indication: Eye inflammation
     Dosage: 4X A DAY ON THE 1ST WEEK, 3X A DAY OF THE 2ND WEEK, 2X A DAY ON THE 3RD WEEK AND ONCE A DAY ON TH...
     Route: 047
     Dates: start: 20230531

REACTIONS (1)
  - Eye discharge [Not Recovered/Not Resolved]

NARRATIVE: CASE EVENT DATE: 20230531
